FAERS Safety Report 10409812 (Version 1)
Quarter: 2014Q3

REPORT INFORMATION
  Report Type: Spontaneous
  Country: US (occurrence: None)
  Receive Date: 20140822
  Receipt Date: 20140822
  Transmission Date: 20150326
  Serious: Yes (Hospitalization)
  Sender: FDA-Public Use
  Company Number: 1439706

PATIENT
  Age: 8 Month
  Sex: Female

DRUGS (1)
  1. CALDESENE [Suspect]
     Active Substance: TALC\ZINC OXIDE

REACTIONS (3)
  - Cough [None]
  - Accidental exposure to product by child [None]
  - Respiratory disorder [None]

NARRATIVE: CASE EVENT DATE: 20140127
